FAERS Safety Report 24568145 (Version 12)
Quarter: 2025Q4

REPORT INFORMATION
  Report Type: Report from Study
  Country: EU (occurrence: EU)
  Receive Date: 20241031
  Receipt Date: 20251115
  Transmission Date: 20260118
  Serious: Yes (Hospitalization)
  Sender: JOHNSON AND JOHNSON
  Company Number: EU-JNJFOC-20241042762

PATIENT
  Age: 22 Year
  Sex: Female
  Weight: 114 kg

DRUGS (2)
  1. ESKETAMINE [Suspect]
     Active Substance: ESKETAMINE
     Indication: Depression
     Dosage: 84 MG, 04-JUN-2024, 06-JUN-2024, 11-JUN-2024, 13-JUN-2024, 18-JUN-2024, 20-JUN-2024, 25-JUN-2024, 03
     Route: 045
     Dates: start: 20240604, end: 20250723
  2. ESKETAMINE [Suspect]
     Active Substance: ESKETAMINE
     Dosage: 56 MG, TOTAL OF 2 DOSES, 28-MAY-2024, 30-MAY-2024
     Route: 045
     Dates: start: 20240528, end: 20240530

REACTIONS (6)
  - Tonsillitis [Recovered/Resolved]
  - Tonsillitis [Recovered/Resolved]
  - Post procedural haemorrhage [Recovered/Resolved]
  - Viral upper respiratory tract infection [Recovered/Resolved]
  - Restlessness [Recovered/Resolved]
  - Anxiety [Recovered/Resolved]

NARRATIVE: CASE EVENT DATE: 20240916
